FAERS Safety Report 23954183 (Version 2)
Quarter: 2024Q2

REPORT INFORMATION
  Report Type: Report from Study
  Country: US (occurrence: US)
  Receive Date: 20240609
  Receipt Date: 20240620
  Transmission Date: 20240715
  Serious: Yes (Other)
  Sender: FDA-Public Use
  Company Number: US-ABBVIE-5789489

PATIENT
  Sex: Male
  Weight: 78.018 kg

DRUGS (1)
  1. SKYRIZI [Suspect]
     Active Substance: RISANKIZUMAB-RZAA
     Indication: Crohn^s disease
     Route: 058
     Dates: start: 202307

REACTIONS (5)
  - Gastrointestinal disorder [Unknown]
  - Crohn^s disease [Unknown]
  - Arthralgia [Unknown]
  - Myalgia [Unknown]
  - Enteritis [Unknown]

NARRATIVE: CASE EVENT DATE: 20230101
